FAERS Safety Report 21496434 (Version 1)
Quarter: 2022Q4

REPORT INFORMATION
  Report Type: Spontaneous
  Country: US (occurrence: US)
  Receive Date: 20221022
  Receipt Date: 20221022
  Transmission Date: 20230112
  Serious: No
  Sender: FDA-Public Use
  Company Number: US-CELLTRION INC.-2022US007887

PATIENT

DRUGS (8)
  1. INFLECTRA [Suspect]
     Active Substance: INFLIXIMAB-DYYB
     Indication: Arthritis
     Dosage: UNK, EVERY 5 WEEKS (FIRST DOSE)
  2. INFLECTRA [Suspect]
     Active Substance: INFLIXIMAB-DYYB
     Dosage: UNK, EVERY 5 WEEKS (SECOND DOSE)
  3. INFLECTRA [Suspect]
     Active Substance: INFLIXIMAB-DYYB
     Dosage: UNK, EVERY 5 WEEKS (THIRD DOSE)
  4. METHOTREXATE [Concomitant]
     Active Substance: METHOTREXATE
     Indication: Colitis ulcerative
     Dosage: 2.5MG ONCE A WEEK, TAKES 6 PILLS (MORE THAN A YEAR AGO)
  5. METHOTREXATE [Concomitant]
     Active Substance: METHOTREXATE
     Indication: Arthritis
  6. VITAMIN D NOS [Concomitant]
     Active Substance: VITAMIN D NOS
     Indication: Colitis ulcerative
     Dosage: DAILY DOSE (BEEN ON IT FOR ABOUT SIX YEARS)
  7. VITAMIN D NOS [Concomitant]
     Active Substance: VITAMIN D NOS
     Indication: Arthritis
  8. FLUOXETINE [Concomitant]
     Active Substance: FLUOXETINE HYDROCHLORIDE
     Dosage: 40MG DAILY (IMPACTING HER MENTAL HEALTH/ STARTED TAKING IT PROBABLY ABOUT TWO YEARS AGO)

REACTIONS (1)
  - Insurance issue [Unknown]
